FAERS Safety Report 10041174 (Version 1)
Quarter: 2014Q1

REPORT INFORMATION
  Report Type: Spontaneous
  Country: US (occurrence: None)
  Receive Date: 20140326
  Receipt Date: 20140326
  Transmission Date: 20141002
  Serious: Yes (Other)
  Sender: FDA-Public Use
  Company Number: None

PATIENT
  Age: 30 Year
  Sex: Female
  Weight: 92.99 kg

DRUGS (1)
  1. ALLI [Suspect]
     Indication: OVERWEIGHT
     Route: 048
     Dates: start: 20140204, end: 20140312

REACTIONS (3)
  - Abdominal pain upper [None]
  - Colitis ischaemic [None]
  - Gastrointestinal infection [None]
